FAERS Safety Report 8837044 (Version 1)
Quarter: 2012Q4

REPORT INFORMATION
  Report Type: Spontaneous
  Country: US (occurrence: None)
  Receive Date: 20121011
  Receipt Date: 20121011
  Transmission Date: 20130627
  Serious: Yes (Life-Threatening)
  Sender: FDA-Public Use
  Company Number: None

PATIENT
  Age: 42 Year
  Sex: Male
  Weight: 111.13 kg

DRUGS (2)
  1. PRISTIQ [Suspect]
     Indication: ANXIETY
     Dosage: 100 mg Daily po
     Route: 048
     Dates: start: 20100501, end: 20120912
  2. PRISTIQ [Suspect]
     Indication: THERAPY CESSATION
     Dosage: 50 mg daily po
     Route: 048
     Dates: start: 20120912, end: 20120926

REACTIONS (11)
  - Drug withdrawal syndrome [None]
  - Tinnitus [None]
  - Mania [None]
  - Impulsive behaviour [None]
  - Abulia [None]
  - Irritability [None]
  - Aggression [None]
  - Hyperacusis [None]
  - Tachyphrenia [None]
  - Anxiety [None]
  - Photophobia [None]
